FAERS Safety Report 11091464 (Version 1)
Quarter: 2015Q2

REPORT INFORMATION
  Report Type: Spontaneous
  Country: US (occurrence: None)
  Receive Date: 20150504
  Receipt Date: 20150504
  Transmission Date: 20150821
  Serious: Yes (Life-Threatening, Disabling)
  Sender: FDA-Public Use
  Company Number: None

PATIENT
  Age: 62 Year
  Sex: Male
  Weight: 92.99 kg

DRUGS (10)
  1. BACLOFEN. [Concomitant]
     Active Substance: BACLOFEN
  2. CARVIDALOL [Concomitant]
  3. TRAMADOL [Concomitant]
     Active Substance: TRAMADOL
  4. LISINOPRIL. [Concomitant]
     Active Substance: LISINOPRIL
  5. LEVOTHIROXINE [Concomitant]
  6. SIMVASTATIN. [Concomitant]
     Active Substance: SIMVASTATIN
  7. COPAXONE [Suspect]
     Active Substance: GLATIRAMER ACETATE
     Indication: MULTIPLE SCLEROSIS
     Dosage: 40 MG    MON, WEDN, FR  INTO THE MUSCLE
     Dates: start: 20150501, end: 20150501
  8. GABAPENTIN. [Concomitant]
     Active Substance: GABAPENTIN
  9. COQUE10 [Concomitant]
  10. VITAMIN B12, 6-C [Concomitant]

REACTIONS (3)
  - Back pain [None]
  - Progressive multifocal leukoencephalopathy [None]
  - JC virus test positive [None]

NARRATIVE: CASE EVENT DATE: 20150430
